FAERS Safety Report 13125300 (Version 1)
Quarter: 2017Q1

REPORT INFORMATION
  Report Type: Spontaneous
  Country: BR (occurrence: BR)
  Receive Date: 20170118
  Receipt Date: 20170118
  Transmission Date: 20170428
  Serious: Yes (Hospitalization, Other)
  Sender: FDA-Public Use
  Company Number: BR-PFIZER INC-2017015067

PATIENT
  Age: 27 Year
  Sex: Female
  Weight: 56 kg

DRUGS (1)
  1. SOLU-MEDROL [Suspect]
     Active Substance: METHYLPREDNISOLONE SODIUM SUCCINATE
     Dosage: 250 MG, DAILY
     Route: 042

REACTIONS (9)
  - Injection site reaction [Recovering/Resolving]
  - Hyperaemia [Recovering/Resolving]
  - Transient ischaemic attack [Recovering/Resolving]
  - Fatigue [Recovering/Resolving]
  - Impaired healing [Recovering/Resolving]
  - Oedema peripheral [Recovering/Resolving]
  - Headache [Recovering/Resolving]
  - Malaise [Recovering/Resolving]
  - Language disorder [Recovering/Resolving]

NARRATIVE: CASE EVENT DATE: 20160916
